FAERS Safety Report 6780278-X (Version None)
Quarter: 2010Q2

REPORT INFORMATION
  Report Type: 
  Country: None (occurrence: None)
  Receive Date: 20100618
  Receipt Date: 20100608
  Transmission Date: 20101027
  Serious: Yes (Hospitalization)
  Sender: FDA-Public Use
  Company Number: BR-GENENTECH-302057

PATIENT
  Sex: Female
  Weight: 72 kg

DRUGS (11)
  1. RITUXIMAB [Suspect]
     Indication: RHEUMATOID ARTHRITIS
     Dosage: 1000 MG, UNK
     Route: 042
     Dates: start: 20090717, end: 20090731
  2. RITUXIMAB [Suspect]
     Dosage: 1000 MG, Q15D
     Route: 042
     Dates: start: 20100312, end: 20100312
  3. DICLOFENAC SODIUM [Suspect]
     Indication: DRUG USE FOR UNKNOWN INDICATION
     Route: 065
  4. ARAVA [Concomitant]
     Indication: DRUG USE FOR UNKNOWN INDICATION
     Dosage: 20 MG, UNK
  5. ADRONAT [Concomitant]
     Indication: DRUG USE FOR UNKNOWN INDICATION
     Dosage: UNK
  6. PREDNISONE [Concomitant]
     Indication: DRUG USE FOR UNKNOWN INDICATION
     Dosage: UNK
  7. ASPIRIN [Concomitant]
     Indication: DRUG USE FOR UNKNOWN INDICATION
     Dosage: UNK
  8. RANITIDINE [Concomitant]
     Indication: DRUG USE FOR UNKNOWN INDICATION
     Dosage: UNK
  9. DIGOXIN [Concomitant]
     Indication: DRUG USE FOR UNKNOWN INDICATION
     Dosage: .25 MG, UNK
  10. ENALAPRIL MALEATE [Concomitant]
     Indication: DRUG USE FOR UNKNOWN INDICATION
     Dosage: UNK
  11. CALCIUM CARBONATE [Concomitant]
     Indication: DRUG USE FOR UNKNOWN INDICATION
     Dosage: UNK

REACTIONS (7)
  - ARTHRALGIA [None]
  - ATRIAL FIBRILLATION [None]
  - CARDIAC DISORDER [None]
  - HEADACHE [None]
  - OEDEMA PERIPHERAL [None]
  - RESPIRATORY TRACT INFECTION [None]
  - SLEEP DISORDER [None]
